FAERS Safety Report 20321404 (Version 2)
Quarter: 2022Q1

REPORT INFORMATION
  Report Type: Spontaneous
  Country: US (occurrence: US)
  Receive Date: 20220111
  Receipt Date: 20220224
  Transmission Date: 20220423
  Serious: No
  Sender: FDA-Public Use
  Company Number: US-JNJFOC-20211257821

PATIENT
  Age: 65 Year
  Sex: Male
  Weight: 134.84 kg

DRUGS (1)
  1. TREMFYA [Suspect]
     Active Substance: GUSELKUMAB
     Indication: Psoriasis
     Route: 058
     Dates: start: 20211227

REACTIONS (2)
  - Product leakage [Unknown]
  - Underdose [Unknown]

NARRATIVE: CASE EVENT DATE: 20211227
